FAERS Safety Report 5983999-1 (Version None)
Quarter: 2008Q4

REPORT INFORMATION
  Report Type: 
  Country: None (occurrence: None)
  Receive Date: 20081208
  Receipt Date: 20081202
  Transmission Date: 20090506
  Serious: Yes (Other)
  Sender: FDA-Public Use
  Company Number: US-ASTRAZENECA-2008UW26802

PATIENT
  Age: 82 Year
  Sex: Female
  Weight: 50.8 kg

DRUGS (8)
  1. ARIMIDEX [Suspect]
     Indication: BREAST CANCER
     Route: 048
     Dates: start: 20050101
  2. NEXIUM [Suspect]
     Route: 048
     Dates: start: 20060101
  3. ASPIRIN [Concomitant]
  4. POTASSIUM CHLORIDE [Concomitant]
  5. FOLIC ACID [Concomitant]
  6. AMOXICILLIN [Concomitant]
     Indication: DENTAL DISORDER PROPHYLAXIS
  7. DEXAMETHASONE [Concomitant]
     Indication: DENTAL DISORDER PROPHYLAXIS
  8. SUPER B COMPLEX AND VITAMIN C [Concomitant]

REACTIONS (8)
  - DYSPHAGIA [None]
  - FALL [None]
  - HOT FLUSH [None]
  - MOOD ALTERED [None]
  - PAIN [None]
  - PHARYNGEAL OEDEMA [None]
  - SURGERY [None]
  - THROAT TIGHTNESS [None]
